FAERS Safety Report 12657675 (Version 4)
Quarter: 2020Q3

REPORT INFORMATION
  Report Type: Report from Study
  Country: UA (occurrence: UA)
  Receive Date: 20160816
  Receipt Date: 20161118
  Transmission Date: 20201104
  Serious: Yes (Hospitalization)
  Sender: FDA-Public Use
  Company Number: UA-JNJFOC-20160803587

PATIENT
  Age: 56 Year
  Sex: Male
  Weight: 100 kg

DRUGS (12)
  1. LISINOPRIL AND HYDROCHLOROTHIAZIDE [Concomitant]
     Active Substance: HYDROCHLOROTHIAZIDE\LISINOPRIL
     Indication: HYPERTENSION
     Dosage: 10 MG LISINOPRIL + HYDROCHLOROTHIAZIDE 12.5 MG
     Route: 048
     Dates: start: 20150703
  2. FELODIP [Concomitant]
     Indication: HYPERTENSION
     Route: 048
     Dates: start: 20150703
  3. CALCIUM [Concomitant]
     Active Substance: CALCIUM
     Route: 048
  4. GOLIMUMAB [Suspect]
     Active Substance: GOLIMUMAB
     Indication: PSORIATIC ARTHROPATHY
     Route: 042
     Dates: start: 20160126
  5. FANIGAN [Concomitant]
     Indication: PSORIATIC ARTHROPATHY
     Dosage: 500/50
     Route: 048
     Dates: start: 20150718
  6. ZOLOPANT [Concomitant]
     Indication: GASTRITIS
     Route: 048
     Dates: start: 20150703
  7. METHOTREXATE. [Concomitant]
     Active Substance: METHOTREXATE
     Indication: PSORIATIC ARTHROPATHY
     Route: 048
     Dates: start: 20150703
  8. ACIDUM FOLICUM [Concomitant]
     Active Substance: FOLIC ACID
     Indication: PSORIATIC ARTHROPATHY
     Route: 048
     Dates: start: 20150706
  9. BISOPROLOL [Concomitant]
     Active Substance: BISOPROLOL
     Indication: HYPERTENSION
     Route: 048
     Dates: start: 20150703
  10. METHYLPREDNISOLONE. [Concomitant]
     Active Substance: METHYLPREDNISOLONE
     Indication: PSORIATIC ARTHROPATHY
     Route: 048
     Dates: start: 20150703
  11. GOLIMUMAB [Suspect]
     Active Substance: GOLIMUMAB
     Indication: PSORIATIC ARTHROPATHY
     Route: 042
     Dates: start: 20160711, end: 20160801
  12. INOSINE PRANOBEX [Concomitant]
     Active Substance: INOSINE PRANOBEX
     Indication: RESPIRATORY TRACT INFECTION
     Route: 048
     Dates: start: 20160722

REACTIONS (1)
  - Pulmonary tuberculosis [Recovered/Resolved with Sequelae]

NARRATIVE: CASE EVENT DATE: 20160727
